FAERS Safety Report 11356893 (Version 1)
Quarter: 2015Q3

REPORT INFORMATION
  Report Type: Spontaneous
  Country: US (occurrence: US)
  Receive Date: 20150803
  Receipt Date: 20150803
  Transmission Date: 20151125
  Serious: No
  Sender: FDA-Public Use
  Company Number: US-ELI_LILLY_AND_COMPANY-US201212002704

PATIENT
  Age: 8 Year
  Sex: Male
  Weight: 25.4 kg

DRUGS (3)
  1. MAXALT                                  /USA/ [Concomitant]
     Indication: MIGRAINE
     Dosage: UNK
  2. STRATTERA [Suspect]
     Active Substance: ATOMOXETINE HYDROCHLORIDE
     Dosage: 25 MG, QD
     Route: 048
     Dates: start: 201211
  3. STRATTERA [Suspect]
     Active Substance: ATOMOXETINE HYDROCHLORIDE
     Indication: ATTENTION DEFICIT/HYPERACTIVITY DISORDER
     Dosage: 18 MG, QD
     Dates: start: 201205

REACTIONS (3)
  - Hostility [Unknown]
  - Migraine [Unknown]
  - Aggression [Recovered/Resolved]
